FAERS Safety Report 15255219 (Version 3)
Quarter: 2018Q3

REPORT INFORMATION
  Report Type: Spontaneous
  Country: CN (occurrence: CN)
  Receive Date: 20180808
  Receipt Date: 20180822
  Transmission Date: 20181010
  Serious: Yes (Death, Life-Threatening, Hospitalization, Other)
  Sender: FDA-Public Use
  Company Number: CN-PFIZER INC-2018316057

PATIENT
  Age: 5 Year
  Sex: Male

DRUGS (2)
  1. GLUCOSE + SODIUM CHLORIDE [Concomitant]
     Indication: UPPER RESPIRATORY TRACT INFECTION
     Dosage: 100 ML, UNK
     Route: 042
  2. CEFTRIAXONE SODIUM. [Suspect]
     Active Substance: CEFTRIAXONE SODIUM
     Indication: UPPER RESPIRATORY TRACT INFECTION
     Dosage: 2 G, UNK
     Route: 042

REACTIONS (2)
  - Hypovolaemic shock [Fatal]
  - Haemolytic anaemia [Fatal]
